FAERS Safety Report 10788272 (Version 1)
Quarter: 2015Q1

REPORT INFORMATION
  Report Type: Spontaneous
  Country: US (occurrence: None)
  Receive Date: 20150211
  Receipt Date: 20150211
  Transmission Date: 20150721
  Serious: Yes (Hospitalization)
  Sender: FDA-Public Use
  Company Number: None

PATIENT
  Age: 51 Year
  Sex: Male
  Weight: 98.88 kg

DRUGS (9)
  1. MORPHINE [Concomitant]
     Active Substance: MORPHINE
  2. PIPERACILLIN AND TAZOBACTAM [Concomitant]
     Active Substance: PIPERACILLIN SODIUM\TAZOBACTAM SODIUM
  3. LISINOPRIL-HCTZ [Concomitant]
     Active Substance: HYDROCHLOROTHIAZIDE\LISINOPRIL
  4. VANCOMYCIN [Suspect]
     Active Substance: VANCOMYCIN
     Indication: CELLULITIS
     Dosage: 2 DOSES IN 19 HOURS?2 G EVERY 18 HOURS INTRAVENOUS
     Route: 042
  5. HEPARIN [Concomitant]
     Active Substance: HEPARIN SODIUM
  6. ONDANSETRON [Concomitant]
     Active Substance: ONDANSETRON
  7. OXYCODONE HYDROCHLORIDE IR [Concomitant]
     Active Substance: OXYCODONE HYDROCHLORIDE
  8. FUROSEMIDE. [Concomitant]
     Active Substance: FUROSEMIDE
  9. ASPIRIN. [Concomitant]
     Active Substance: ASPIRIN

REACTIONS (2)
  - Acute kidney injury [None]
  - Leukocytosis [None]

NARRATIVE: CASE EVENT DATE: 20141227
